FAERS Safety Report 12121189 (Version 1)
Quarter: 2016Q1

REPORT INFORMATION
  Report Type: Spontaneous
  Country: US (occurrence: US)
  Receive Date: 20160226
  Receipt Date: 20160226
  Transmission Date: 20160526
  Serious: No
  Sender: FDA-Public Use
  Company Number: US-ALLERGAN-1106293US

PATIENT
  Age: 63 Year
  Sex: Female

DRUGS (3)
  1. REFRESH OPTIVE [Suspect]
     Active Substance: CARBOXYMETHYLCELLULOSE SODIUM\GLYCERIN
     Indication: DRY EYE
     Dosage: 1 GTT, PRN
     Route: 047
     Dates: start: 2009
  2. RESTASIS [Concomitant]
     Active Substance: CYCLOSPORINE
     Indication: DRY EYE
     Dosage: 1 GTT, BID
     Route: 047
  3. GENTEAL                            /00445101/ [Concomitant]
     Indication: DRY EYE
     Dosage: UNK
     Route: 047

REACTIONS (6)
  - Hypersensitivity [Recovered/Resolved]
  - Ocular hyperaemia [Not Recovered/Not Resolved]
  - Acrochordon [Recovered/Resolved]
  - Eye disorder [Not Recovered/Not Resolved]
  - Skin burning sensation [Not Recovered/Not Resolved]
  - Eye discharge [Not Recovered/Not Resolved]
